FAERS Safety Report 16292110 (Version 1)
Quarter: 2019Q2

REPORT INFORMATION
  Report Type: Spontaneous
  Country: US (occurrence: US)
  Receive Date: 20190509
  Receipt Date: 20190509
  Transmission Date: 20190711
  Serious: Yes (Other)
  Sender: FDA-Public Use
  Company Number: US-ALEXION PHARMACEUTICALS INC.-A201906948

PATIENT
  Age: 12 Year
  Sex: Female

DRUGS (1)
  1. SOLIRIS [Suspect]
     Active Substance: ECULIZUMAB
     Indication: PAROXYSMAL NOCTURNAL HAEMOGLOBINURIA
     Dosage: UNK
     Route: 065

REACTIONS (4)
  - Reticulocytosis [Not Recovered/Not Resolved]
  - Intravascular haemolysis [Not Recovered/Not Resolved]
  - Extravascular haemolysis [Unknown]
  - Hyperbilirubinaemia [Not Recovered/Not Resolved]
